FAERS Safety Report 19991382 (Version 1)
Quarter: 2021Q4

REPORT INFORMATION
  Report Type: Spontaneous
  Country: US (occurrence: US)
  Receive Date: 20211025
  Receipt Date: 20211025
  Transmission Date: 20220303
  Serious: Yes (Life-Threatening, Hospitalization)
  Sender: FDA-Public Use
  Company Number: US-MYLANLABS-2021M1074353

PATIENT
  Age: 88 Year
  Sex: Male

DRUGS (1)
  1. AMIODARONE [Interacting]
     Active Substance: AMIODARONE
     Indication: Atrial fibrillation
     Dosage: UNK
     Route: 065

REACTIONS (3)
  - Acute respiratory distress syndrome [Recovering/Resolving]
  - Acute respiratory failure [Recovering/Resolving]
  - Labelled drug-drug interaction medication error [Recovering/Resolving]
